FAERS Safety Report 17236476 (Version 1)
Quarter: 2020Q1

REPORT INFORMATION
  Report Type: Report from Study
  Country: DE (occurrence: DE)
  Receive Date: 20200106
  Receipt Date: 20200106
  Transmission Date: 20200409
  Serious: Yes (Other)
  Sender: FDA-Public Use
  Company Number: DE-ROCHE-2511919

PATIENT

DRUGS (5)
  1. VINCRISTINE [Suspect]
     Active Substance: VINCRISTINE
     Indication: B-CELL LYMPHOMA
     Dosage: WITH A MAXIMUM TOTAL DOSE OF 2 MG
     Route: 042
  2. CYCLOPHOSPHAMIDE. [Suspect]
     Active Substance: CYCLOPHOSPHAMIDE
     Indication: B-CELL LYMPHOMA
     Route: 042
  3. RITUXIMAB. [Suspect]
     Active Substance: RITUXIMAB
     Indication: B-CELL LYMPHOMA
     Route: 065
  4. DOXORUBICIN [Suspect]
     Active Substance: DOXORUBICIN
     Indication: B-CELL LYMPHOMA
     Route: 042
  5. PREDNISONE. [Suspect]
     Active Substance: PREDNISONE
     Indication: B-CELL LYMPHOMA
     Route: 048

REACTIONS (15)
  - Infection [Unknown]
  - Coronary artery disease [Unknown]
  - Thrombocytopenia [Unknown]
  - Constipation [Unknown]
  - Mood altered [Unknown]
  - Hypersensitivity [Unknown]
  - Arrhythmia [Unknown]
  - Atrial fibrillation [Unknown]
  - Cardiac failure [Unknown]
  - Mucosal inflammation [Unknown]
  - Diarrhoea [Unknown]
  - Anaemia [Unknown]
  - Paraplegia [Unknown]
  - Leukopenia [Unknown]
  - Vomiting [Unknown]
